FAERS Safety Report 5906900-5 (Version None)
Quarter: 2008Q4

REPORT INFORMATION
  Report Type: 
  Country: None (occurrence: None)
  Receive Date: 20081003
  Receipt Date: 20080924
  Transmission Date: 20090506
  Serious: Yes (Other)
  Sender: FDA-Public Use
  Company Number: FR-SP-2008-03011

PATIENT
  Age: 61 Year
  Sex: Male

DRUGS (1)
  1. BCG  THERAPEUTICS [Suspect]
     Indication: BLADDER CANCER
     Dosage: NOT REPORTED
     Route: 043

REACTIONS (6)
  - BALANITIS [None]
  - BOVINE TUBERCULOSIS [None]
  - GENITAL PAIN [None]
  - NODULE [None]
  - SKIN LESION [None]
  - SUBCUTANEOUS NODULE [None]
